FAERS Safety Report 9241513 (Version 1)
Quarter: 2013Q2

REPORT INFORMATION
  Report Type: Spontaneous
  Country: US (occurrence: None)
  Receive Date: 20130419
  Receipt Date: 20130419
  Transmission Date: 20140414
  Serious: Yes (Hospitalization)
  Sender: FDA-Public Use
  Company Number: None

PATIENT
  Age: 86 Year
  Sex: Male
  Weight: 86 kg

DRUGS (5)
  1. COUMADIN [Suspect]
     Indication: AORTIC VALVE REPLACEMENT
     Route: 048
     Dates: start: 200702
  2. HCTZ [Concomitant]
  3. SIMVASTATIN [Concomitant]
  4. TRAMADOL [Concomitant]
  5. TRIAMTERENE [Concomitant]

REACTIONS (6)
  - Acute myeloid leukaemia [None]
  - Dyspnoea [None]
  - Asthenia [None]
  - International normalised ratio increased [None]
  - Prothrombin time prolonged [None]
  - Pancytopenia [None]
